FAERS Safety Report 8349660-3 (Version None)
Quarter: 2012Q2

REPORT INFORMATION
  Report Type: 
  Country: None (occurrence: None)
  Receive Date: 20120510
  Receipt Date: 20120507
  Transmission Date: 20120825
  Serious: Yes (Other)
  Sender: FDA-Public Use
  Company Number: PHHY2012AR038132

PATIENT
  Sex: Male

DRUGS (2)
  1. RASILEZ D [Suspect]
     Indication: HYPERTENSION
     Dosage: 150/12.5 MG DAILY
  2. RASILEZ D [Suspect]
     Indication: CARDIAC DISORDER

REACTIONS (4)
  - ROAD TRAFFIC ACCIDENT [None]
  - BLOOD PRESSURE DECREASED [None]
  - BLOOD PRESSURE FLUCTUATION [None]
  - FALL [None]
